FAERS Safety Report 5038932-6 (Version None)
Quarter: 2006Q2

REPORT INFORMATION
  Report Type: 
  Country: None (occurrence: None)
  Receive Date: 20060627
  Receipt Date: 20060627
  Transmission Date: 20061013
  Serious: Yes (Other)
  Sender: FDA-Public Use
  Company Number: None

PATIENT
  Age: 69 Year
  Sex: Female
  Weight: 128.6 kg

DRUGS (2)
  1. FLUOXETINE [Suspect]
     Indication: ANXIETY
     Dosage: 20 MG ONE DAILY PO
     Route: 048
     Dates: start: 20050101, end: 20060101
  2. FLUOXETINE [Suspect]
     Indication: DEPRESSION
     Dosage: 20 MG ONE DAILY PO
     Route: 048
     Dates: start: 20050101, end: 20060101

REACTIONS (3)
  - DRUG EFFECT DECREASED [None]
  - PHARMACEUTICAL PRODUCT COMPLAINT [None]
  - THERAPEUTIC RESPONSE UNEXPECTED WITH DRUG SUBSTITUTION [None]
